FAERS Safety Report 6190548-4 (Version None)
Quarter: 2009Q2

REPORT INFORMATION
  Report Type: 
  Country: None (occurrence: None)
  Receive Date: 20090514
  Receipt Date: 20090401
  Transmission Date: 20091009
  Serious: Yes (Hospitalization)
  Sender: FDA-Public Use
  Company Number: FR-PFIZER-2009192334

PATIENT
  Age: 71 Year

DRUGS (5)
  1. LYRICA [Suspect]
     Dosage: 25 MG, 3X/DAY
  2. FLECAINE [Concomitant]
  3. KARDEGIC [Concomitant]
  4. FRACTAL [Concomitant]
  5. BETA BLOCKING AGENTS [Concomitant]

REACTIONS (2)
  - DEPRESSED LEVEL OF CONSCIOUSNESS [None]
  - GLOBAL AMNESIA [None]
